FAERS Safety Report 4627998-0 (Version None)
Quarter: 2005Q1

REPORT INFORMATION
  Report Type: 
  Country: None (occurrence: None)
  Receive Date: 20050329
  Receipt Date: 20050318
  Transmission Date: 20050727
  Serious: Yes (Death, Hospitalization)
  Sender: FDA-Public Use
  Company Number: DEWYE514518MAR05

PATIENT
  Age: 51 Year
  Sex: Male

DRUGS (2)
  1. REFACTO [Suspect]
     Indication: FACTOR VIII DEFICIENCY
     Dosage: 2000 IU 3 TIMES PER WEEK
     Dates: start: 20031030, end: 20041023
  2. PARACETAMOL [Concomitant]

REACTIONS (1)
  - CEREBRAL HAEMORRHAGE [None]
